FAERS Safety Report 5335757-9 (Version None)
Quarter: 2007Q2

REPORT INFORMATION
  Report Type: 
  Country: None (occurrence: None)
  Receive Date: 20070322
  Receipt Date: 20070206
  Transmission Date: 20071010
  Serious: No
  Sender: FDA-Public Use
  Company Number: 2007US000338

PATIENT
  Age: 87 Year
  Sex: Female

DRUGS (1)
  1. VESICARE [Suspect]
     Indication: BLADDER DISORDER
     Dosage: 5 MG, UID/QD, ORAL
     Route: 048
     Dates: end: 20070201

REACTIONS (1)
  - PRURITUS [None]
